FAERS Safety Report 4466102-9 (Version None)
Quarter: 2004Q3

REPORT INFORMATION
  Report Type: 
  Country: None (occurrence: None)
  Receive Date: 20040930
  Receipt Date: 20040920
  Transmission Date: 20050211
  Serious: Yes (Hospitalization)
  Sender: FDA-Public Use
  Company Number: STA-AE-04-MTX-436

PATIENT
  Age: 51 Year
  Sex: Female

DRUGS (23)
  1. RHEUMATREX [Suspect]
     Indication: RHEUMATOID ARTHRITIS
     Dosage: SEE IMAGE
     Route: 048
     Dates: start: 20010309, end: 20010524
  2. RHEUMATREX [Suspect]
     Indication: RHEUMATOID ARTHRITIS
     Dosage: SEE IMAGE
     Route: 048
     Dates: start: 20010525, end: 20020330
  3. RHEUMATREX [Suspect]
     Indication: RHEUMATOID ARTHRITIS
     Dosage: SEE IMAGE
     Route: 048
     Dates: start: 20020421, end: 20020625
  4. RHEUMATREX [Suspect]
     Indication: RHEUMATOID ARTHRITIS
     Dosage: SEE IMAGE
     Route: 048
     Dates: start: 20020626, end: 20021031
  5. RHEUMATREX [Suspect]
     Indication: RHEUMATOID ARTHRITIS
     Dosage: SEE IMAGE
     Route: 048
     Dates: start: 20021101, end: 20030929
  6. RHEUMATREX [Suspect]
     Indication: RHEUMATOID ARTHRITIS
     Dosage: SEE IMAGE
     Route: 048
     Dates: start: 20030930, end: 20040214
  7. METHOTREXATE [Suspect]
     Indication: RHEUMATOID ARTHRITIS
     Dosage: SEE IMAGE
     Route: 048
     Dates: start: 20030617, end: 20030721
  8. METHOTREXATE [Suspect]
     Indication: RHEUMATOID ARTHRITIS
     Dosage: SEE IMAGE
     Route: 048
     Dates: start: 20030723, end: 20040214
  9. PREDNISOLONE [Suspect]
     Indication: RHEUMATOID ARTHRITIS
     Dosage: 5 MG, 1 X PER 1 WK, ORAL
     Route: 048
     Dates: start: 20010401
  10. REMICADE [Suspect]
     Indication: RHEUMATOID ARTHRITIS
     Dosage: 3 MG/KG 1 X PER 1 DAY
     Dates: start: 20031211, end: 20031211
  11. REMICADE [Suspect]
     Indication: RHEUMATOID ARTHRITIS
     Dosage: 3 MG/KG 1 X PER 1 DAY
     Dates: start: 20031225, end: 20031225
  12. REMICADE [Suspect]
     Indication: RHEUMATOID ARTHRITIS
     Dosage: 3 MG/KG 1 X PER 1 DAY
     Dates: start: 20040122, end: 20040122
  13. REMICADE [Suspect]
     Indication: RHEUMATOID ARTHRITIS
     Dosage: 3 MG/KG 1 X PER 1 DAY
     Dates: start: 20040318, end: 20040318
  14. REMICADE [Suspect]
     Indication: RHEUMATOID ARTHRITIS
     Dosage: 3 MG/KG 1 X PER 1 DAY
     Dates: start: 20040513, end: 20040513
  15. VOLTAREN [Concomitant]
  16. SELBEX (TEPRENONE) [Concomitant]
  17. FOLIC ACID [Concomitant]
  18. GASTER (FAMOTIDINE) [Concomitant]
  19. ONE-ALPHA (ALFACALCIDOL) [Concomitant]
  20. ADOFEED (FLURBIPROFEN) [Concomitant]
  21. RESTAMIN (DIPHENHYDRAMINE) [Concomitant]
  22. MUCOSOLVAN (AMBROXOL HYDROCHLORIDE) [Concomitant]
  23. MEDICON (DEXTROMETHORPAN HYDROBROMIDE) [Concomitant]

REACTIONS (5)
  - BLOOD PRESSURE DECREASED [None]
  - BRONCHITIS ACUTE [None]
  - CONDITION AGGRAVATED [None]
  - INTERSTITIAL LUNG DISEASE [None]
  - MEDICATION ERROR [None]
